FAERS Safety Report 17812157 (Version 2)
Quarter: 2020Q3

REPORT INFORMATION
  Report Type: Spontaneous
  Country: FR (occurrence: FR)
  Receive Date: 20200521
  Receipt Date: 20200709
  Transmission Date: 20201102
  Serious: Yes (Hospitalization)
  Sender: FDA-Public Use
  Company Number: FR-B.I. PHARMACEUTICALS,INC./RIDGEFIELD-2020-12-024620

PATIENT
  Age: 70 Year
  Sex: Female
  Weight: 78 kg

DRUGS (10)
  1. INTRALIPIDE [Concomitant]
     Active Substance: SOYBEAN OIL
     Indication: PRODUCT USED FOR UNKNOWN INDICATION
     Route: 042
     Dates: start: 20200303, end: 20200303
  2. MIDAZOLAM. [Concomitant]
     Active Substance: MIDAZOLAM
     Indication: PRODUCT USED FOR UNKNOWN INDICATION
     Route: 042
     Dates: start: 20200303, end: 20200303
  3. SEVOFLURANE. [Suspect]
     Active Substance: SEVOFLURANE
     Indication: GENERAL ANAESTHESIA
     Route: 042
     Dates: start: 20200303, end: 20200303
  4. SUFENTANIL [Suspect]
     Active Substance: SUFENTANIL
     Indication: GENERAL ANAESTHESIA
     Route: 042
     Dates: start: 20200303, end: 20200303
  5. MEPIVACAINE HYDROCHLORIDE. [Suspect]
     Active Substance: MEPIVACAINE HYDROCHLORIDE
     Indication: NERVE BLOCK
     Route: 065
     Dates: start: 20200303, end: 20200303
  6. CATAPRESSAN [Suspect]
     Active Substance: CLONIDINE
     Indication: NERVE BLOCK
     Route: 042
     Dates: start: 20200303, end: 20200303
  7. KETAMINE [Suspect]
     Active Substance: KETAMINE
     Indication: GENERAL ANAESTHESIA
     Route: 065
     Dates: start: 20200303, end: 20200303
  8. ROPIVACAINE HYDROCHLORIDE MONOHYDRATE [Suspect]
     Active Substance: ROPIVACAINE HYDROCHLORIDE
     Indication: NERVE BLOCK
     Route: 065
     Dates: start: 20200303, end: 20200303
  9. PROPOFOL. [Suspect]
     Active Substance: PROPOFOL
     Indication: GENERAL ANAESTHESIA
     Route: 042
     Dates: start: 20200303, end: 20200303
  10. HALOPERIDOL. [Concomitant]
     Active Substance: HALOPERIDOL
     Indication: PRODUCT USED FOR UNKNOWN INDICATION
     Dosage: QUELQUES GOUTTES
     Route: 030
     Dates: start: 20200303, end: 20200305

REACTIONS (2)
  - Confusional state [Recovered/Resolved]
  - Agitation [Recovered/Resolved]

NARRATIVE: CASE EVENT DATE: 20200303
